FAERS Safety Report 18038156 (Version 1)
Quarter: 2020Q3

REPORT INFORMATION
  Report Type: Spontaneous
  Country: DK (occurrence: DK)
  Receive Date: 20200717
  Receipt Date: 20200717
  Transmission Date: 20201103
  Serious: Yes (Life-Threatening, Hospitalization, Other)
  Sender: FDA-Public Use
  Company Number: DK-NALPROPION PHARMACEUTICALS INC.-2020-010577

PATIENT

DRUGS (15)
  1. SERTRALINE ACCORD [Interacting]
     Active Substance: SERTRALINE HYDROCHLORIDE
     Indication: MENTAL DISORDER
     Dosage: 50 MG, QD
     Route: 048
     Dates: start: 2017
  2. PANTOPRAZOLE [Concomitant]
     Active Substance: PANTOPRAZOLE
     Indication: PROPHYLAXIS AGAINST GASTROINTESTINAL ULCER
     Dosage: 40 MG, QD
     Route: 048
     Dates: start: 2010
  3. PREDNISOLON                        /00016201/ [Concomitant]
     Active Substance: PREDNISOLONE
     Indication: ADRENOCORTICAL STEROID THERAPY
     Dosage: 2.5 MG PER DAY OR WHEN NEEDED
     Route: 048
     Dates: start: 2015
  4. MYSIMBA (NALTREXONE HCL/BUPROPION HCL) PROLONGED?RELEASE TABLETS [Suspect]
     Active Substance: BUPROPION HYDROCHLORIDE\NALTREXONE HYDROCHLORIDE
     Indication: WEIGHT DECREASED
     Dosage: TOOK ONLY ONE TABLET, STRENGTH: 8MG/90MG
     Route: 048
     Dates: start: 20200624, end: 20200624
  5. AMITRIPTYLIN [Interacting]
     Active Substance: AMITRIPTYLINE
     Indication: PAIN
     Dosage: 20 MG, QD
     Route: 048
     Dates: start: 2016
  6. ELTROXIN [Concomitant]
     Active Substance: LEVOTHYROXINE
     Indication: MYXOEDEMA
     Dosage: 50 ?G, QD
     Route: 048
     Dates: start: 2015
  7. BENDROZA [Concomitant]
     Active Substance: BENDROFLUMETHIAZIDE\POTASSIUM CHLORIDE
     Indication: HYPERTENSION
     Dosage: 1 DF, QD
     Route: 048
  8. PAMOL [Concomitant]
     Active Substance: ACETAMINOPHEN
     Indication: PAIN
     Dosage: 4000 MG, QD
     Route: 048
     Dates: start: 2018
  9. METADON                            /00068902/ [Interacting]
     Active Substance: METHADONE HYDROCHLORIDE
     Indication: PAIN
     Dosage: 15 MG, QD
     Route: 048
     Dates: start: 2015
  10. KALEORID [Concomitant]
     Active Substance: POTASSIUM CHLORIDE
     Indication: MINERAL SUPPLEMENTATION
     Dosage: 4500 MG, QD
     Route: 048
     Dates: start: 2014
  11. AMLODIPIN SANDOZ                   /00972402/ [Concomitant]
     Active Substance: AMLODIPINE BESYLATE
     Indication: HYPERTENSION
     Dosage: 5 MG, QD
     Route: 048
     Dates: start: 2016
  12. TOILAX [Concomitant]
     Active Substance: BISACODYL
     Indication: CONSTIPATION
     Dosage: 5 MG, QD
     Route: 048
     Dates: start: 2016
  13. GABAPENTIN. [Concomitant]
     Active Substance: GABAPENTIN
     Indication: NEURALGIA
     Dosage: 800 MG, QD
     Route: 048
     Dates: start: 2018
  14. PROMETHAZINE [Concomitant]
     Active Substance: PROMETHAZINE HYDROCHLORIDE
     Indication: INSOMNIA
     Dosage: 25 MG, QD
     Route: 048
     Dates: start: 2018
  15. ESTROFEM                           /00045401/ [Concomitant]
     Active Substance: ESTRADIOL
     Indication: HORMONE THERAPY
     Dosage: 2 MG, QD
     Route: 048
     Dates: start: 2017

REACTIONS (13)
  - Serotonin syndrome [Recovering/Resolving]
  - Cyanosis [Recovered/Resolved]
  - Drug interaction [Recovered/Resolved]
  - Speech disorder [Unknown]
  - Blood pressure increased [Recovering/Resolving]
  - Memory impairment [Unknown]
  - Drug dependence [Recovering/Resolving]
  - Feeling hot [Recovered/Resolved]
  - Cardiovascular insufficiency [Recovering/Resolving]
  - Gait disturbance [Unknown]
  - Seizure [Recovered/Resolved]
  - Product prescribing issue [Unknown]
  - Heart rate increased [Recovering/Resolving]

NARRATIVE: CASE EVENT DATE: 202006
